FAERS Safety Report 14896647 (Version 2)
Quarter: 2018Q2

REPORT INFORMATION
  Report Type: Spontaneous
  Country: IT (occurrence: IT)
  Receive Date: 20180515
  Receipt Date: 20180628
  Transmission Date: 20180711
  Serious: Yes (Hospitalization)
  Sender: FDA-Public Use
  Company Number: IT-PFIZER INC-2018195653

PATIENT
  Age: 86 Year
  Sex: Female
  Weight: 60 kg

DRUGS (17)
  1. FIDATO [Suspect]
     Active Substance: CEFTRIAXONE SODIUM
     Indication: PYREXIA
     Dosage: UNK
     Route: 042
     Dates: start: 20180309, end: 20180312
  2. ATENOLOL. [Concomitant]
     Active Substance: ATENOLOL
     Dosage: UNK
     Route: 048
  3. ZITROMAX [Suspect]
     Active Substance: AZITHROMYCIN
     Indication: PNEUMONITIS
     Dosage: UNK
     Route: 048
     Dates: start: 20180310, end: 20180312
  4. SIMVASTATIN. [Concomitant]
     Active Substance: SIMVASTATIN
     Dosage: UNK
     Route: 048
  5. TRIATEC [Concomitant]
     Dosage: UNK
     Route: 048
  6. ALENDRONATE SODIUM. [Concomitant]
     Active Substance: ALENDRONATE SODIUM
     Dosage: 70 MG, UNK
     Route: 048
  7. ABSORCOL [Concomitant]
     Dosage: UNK
     Route: 048
  8. PORTOLAC [Concomitant]
     Active Substance: LACTITOL
     Dosage: UNK
     Route: 048
  9. LASIX [Concomitant]
     Active Substance: FUROSEMIDE
     Dosage: UNK
  10. GARDENALE [Concomitant]
     Active Substance: PHENOBARBITAL
     Dosage: 2 DF, UNK
     Route: 048
  11. VIMPAT [Concomitant]
     Active Substance: LACOSAMIDE
     Dosage: UNK
  12. LEVETIRACETAM. [Concomitant]
     Active Substance: LEVETIRACETAM
     Dosage: UNK
  13. ELIQUIS [Concomitant]
     Active Substance: APIXABAN
     Dosage: UNK
  14. LIBRADIN [Concomitant]
     Active Substance: BARNIDIPINE HYDROCHLORIDE
     Dosage: 1 DF, UNK
     Route: 048
  15. MEROPENEM. [Suspect]
     Active Substance: MEROPENEM
     Indication: PNEUMONITIS
     Dosage: UNK
     Route: 042
     Dates: start: 20180227, end: 20180306
  16. ZIR FOS [Concomitant]
     Dosage: UNK
  17. VITAMIN360 [Concomitant]
     Dosage: UNK

REACTIONS (2)
  - Rash generalised [Unknown]
  - Dermatitis allergic [Unknown]

NARRATIVE: CASE EVENT DATE: 20180311
